FAERS Safety Report 9457462 (Version 1)
Quarter: 2013Q3

REPORT INFORMATION
  Report Type: Spontaneous
  Country: FR (occurrence: FR)
  Receive Date: 20130814
  Receipt Date: 20130814
  Transmission Date: 20140515
  Serious: Yes (Hospitalization)
  Sender: FDA-Public Use
  Company Number: FR-JNJFOC-20130804482

PATIENT
  Age: 9 Year
  Sex: Female
  Weight: 22 kg

DRUGS (8)
  1. REMICADE [Suspect]
     Indication: CROHN^S DISEASE
     Route: 042
     Dates: start: 20120625
  2. REMICADE [Suspect]
     Indication: CROHN^S DISEASE
     Route: 042
  3. REMICADE [Suspect]
     Indication: CROHN^S DISEASE
     Dosage: 3RD INFUSION
     Route: 042
     Dates: start: 201209, end: 201209
  4. HUMIRA [Suspect]
     Indication: CROHN^S DISEASE
     Route: 058
     Dates: start: 20120907
  5. SOLUPRED [Suspect]
     Indication: CROHN^S DISEASE
     Route: 048
     Dates: start: 20120907
  6. PAMIDRONATE DISODIUM [Suspect]
     Indication: OSTEOMYELITIS CHRONIC
     Route: 048
     Dates: start: 201201, end: 201305
  7. BISPHOSPHONATES [Concomitant]
     Route: 048
     Dates: start: 201201, end: 201305
  8. ACLASTA [Concomitant]
     Route: 065
     Dates: start: 201305

REACTIONS (3)
  - Ovarian germ cell teratoma benign [Recovered/Resolved]
  - Infusion related reaction [Unknown]
  - Hypersensitivity [Unknown]
